FAERS Safety Report 8170433-9 (Version None)
Quarter: 2012Q1

REPORT INFORMATION
  Report Type: 
  Country: None (occurrence: None)
  Receive Date: 20120104
  Receipt Date: 20111118
  Transmission Date: 20120608
  Serious: No
  Sender: FDA-Public Use
  Company Number: 2011HGS-002839

PATIENT
  Age: 46 Year
  Sex: Female
  Weight: 83.4619 kg

DRUGS (7)
  1. FISH OIL (FISH OIL) (FISH OIL) [Concomitant]
  2. PREDNISONE [Concomitant]
  3. BENLYSTA [Suspect]
     Indication: SYSTEMIC LUPUS ERYTHEMATOSUS
     Dosage: 1 IN 28 D, INTRAVENOUS DRIP
     Route: 041
     Dates: start: 20110907
  4. GLUCOSAMINE (GLUCOSAMINE) (GLUCOSAMINE) [Concomitant]
  5. ZOLPIDEM [Concomitant]
  6. CALCIUM (CALCIUM) (CALCIUM) [Concomitant]
  7. LEXAPRO (ESCITALOPRAM OXALATE) (ESCITALOPRAM OXALATE) [Concomitant]

REACTIONS (4)
  - ABDOMINAL PAIN UPPER [None]
  - DIARRHOEA [None]
  - NAUSEA [None]
  - INSOMNIA [None]
